FAERS Safety Report 6839280-1 (Version None)
Quarter: 2010Q3

REPORT INFORMATION
  Report Type: 
  Country: None (occurrence: None)
  Receive Date: 20100714
  Receipt Date: 20090616
  Transmission Date: 20110219
  Serious: No
  Sender: FDA-Public Use
  Company Number: US-KINGPHARMUSA00001-K200900725

PATIENT
  Age: 50 Year
  Sex: Female
  Weight: 70.295 kg

DRUGS (1)
  1. BICILLIN L-A [Suspect]
     Indication: LYME DISEASE
     Dosage: 1200000 IU, QW
     Route: 030
     Dates: start: 20090101

REACTIONS (4)
  - ACNE [None]
  - INJECTION SITE NODULE [None]
  - MILIA [None]
  - RASH [None]
